FAERS Safety Report 20986081 (Version 1)
Quarter: 2022Q2

REPORT INFORMATION
  Report Type: Spontaneous
  Country: US (occurrence: None)
  Receive Date: 20220619
  Receipt Date: 20220619
  Transmission Date: 20220720
  Serious: Yes (Other)
  Sender: FDA-Public Use
  Company Number: None

PATIENT
  Age: 79 Year
  Sex: Male
  Weight: 69.75 kg

DRUGS (11)
  1. METOPROLOL TARTRATE [Suspect]
     Active Substance: METOPROLOL TARTRATE
     Indication: Product used for unknown indication
     Dosage: FREQUENCY : TWICE A DAY;?
     Route: 048
     Dates: start: 20210228
  2. ResMed AirSense [Concomitant]
  3. METOPROLOL TARTRATE [Concomitant]
     Active Substance: METOPROLOL TARTRATE
  4. FLONASE [Concomitant]
     Active Substance: FLUTICASONE PROPIONATE
  5. ALBUTEROL [Concomitant]
     Active Substance: ALBUTEROL
  6. PRAVASTATIN [Concomitant]
     Active Substance: PRAVASTATIN
  7. LOSARTAN [Concomitant]
     Active Substance: LOSARTAN
  8. TADALAFIL [Concomitant]
     Active Substance: TADALAFIL
  9. FINASTERIDE [Concomitant]
     Active Substance: FINASTERIDE
  10. OMEPRAZOLE [Concomitant]
     Active Substance: OMEPRAZOLE
  11. Sentry Senior Multivatiman and Multimineral [Concomitant]

REACTIONS (6)
  - Oxygen saturation decreased [None]
  - Melanocytic naevus [None]
  - Photosensitivity reaction [None]
  - Skin discolouration [None]
  - Skin disorder [None]
  - Therapy change [None]

NARRATIVE: CASE EVENT DATE: 20210415
